FAERS Safety Report 9478426 (Version 2)
Quarter: 2013Q3

REPORT INFORMATION
  Report Type: Spontaneous
  Country: US (occurrence: US)
  Receive Date: 20130827
  Receipt Date: 20130910
  Transmission Date: 20140515
  Serious: Yes (Other)
  Sender: FDA-Public Use
  Company Number: US-009507513-1308USA009203

PATIENT
  Age: 22 Year
  Sex: Female
  Weight: 151.93 kg

DRUGS (1)
  1. IMPLANON [Suspect]
     Indication: CONTRACEPTION
     Dosage: 1 ROD, UNK
     Route: 059
     Dates: start: 20130815, end: 20130819

REACTIONS (3)
  - Rash generalised [Recovered/Resolved]
  - Implant site urticaria [Recovered/Resolved]
  - Urticaria [Recovered/Resolved]
